FAERS Safety Report 8315711 (Version 11)
Quarter: 2012Q4

REPORT INFORMATION
  Report Type: Report from Study
  Country: SE (occurrence: SE)
  Receive Date: 20111229
  Receipt Date: 20121126
  Transmission Date: 20130627
  Serious: Yes (Life-Threatening, Hospitalization)
  Sender: FDA-Public Use
  Company Number: SE-ROCHE-1010555

PATIENT
  Age: 58 Year
  Sex: Female
  Weight: 95.5 kg

DRUGS (12)
  1. VEMURAFENIB [Suspect]
     Indication: MALIGNANT MELANOMA
     Dosage: last dose prior to SAE: 05/Nov/2011
     Route: 048
     Dates: start: 20111031, end: 20111105
  2. VEMURAFENIB [Suspect]
     Route: 048
     Dates: start: 20111114
  3. VEMURAFENIB [Suspect]
     Route: 048
     Dates: start: 20111121, end: 20111127
  4. VEMURAFENIB [Suspect]
     Route: 048
     Dates: start: 20111128, end: 20111226
  5. VEMURAFENIB [Suspect]
     Route: 048
     Dates: start: 20111227
  6. PARACETAMOL [Concomitant]
     Route: 065
     Dates: start: 20110809, end: 20120110
  7. OMEPRAZOL [Concomitant]
     Route: 065
     Dates: start: 20110928
  8. METOCLOPRAMID [Concomitant]
     Route: 065
     Dates: start: 20110923
  9. XENICAL [Concomitant]
     Route: 065
     Dates: start: 20110809
  10. ENOXAPARIN NATRIUM [Concomitant]
     Route: 065
     Dates: start: 20110809
  11. BETAMETASONA [Concomitant]
     Route: 065
     Dates: start: 20111031, end: 20120207
  12. LEVOTYROXIN [Concomitant]
     Indication: HYPOTHYROIDISM
     Route: 065
     Dates: start: 20110809

REACTIONS (1)
  - Tumour lysis syndrome [Recovered/Resolved]
